FAERS Safety Report 8576445-5 (Version None)
Quarter: 2012Q3

REPORT INFORMATION
  Report Type: 
  Country: None (occurrence: None)
  Receive Date: 20120725
  Receipt Date: 20120709
  Transmission Date: 20120928
  Serious: Yes (Other)
  Sender: FDA-Public Use
  Company Number: 2011MA002617

PATIENT
  Sex: Female

DRUGS (22)
  1. CYMBALTA [Concomitant]
  2. OXYCODONE HCL AND ACETAMINOPHEN [Concomitant]
  3. METOCLOPRAMIDE [Suspect]
     Dosage: 5 MG; BID; PO
     Route: 048
     Dates: start: 19900101, end: 20091201
  4. LIDODERM [Concomitant]
  5. LOVASTATIN [Concomitant]
  6. PREVACID [Concomitant]
  7. AZITHROMYCIN [Concomitant]
  8. CLONAZEPAM [Concomitant]
  9. CLOTRIMAZOLE-BETAMETHAXONE [Concomitant]
  10. LEVAQUIN [Concomitant]
  11. LYRICA [Concomitant]
  12. METOLAZONE [Concomitant]
  13. POTASSIUM CHLORIDE [Concomitant]
  14. RITALIN [Concomitant]
  15. LEXAPRO [Concomitant]
  16. AMBIEN [Concomitant]
  17. BUTALBITAL/ASA/CAFFEINE/CODEINE [Concomitant]
  18. FENTANYL [Concomitant]
  19. FLUOXETINE HCL [Concomitant]
  20. ONDANSETRON [Concomitant]
  21. IMITREX [Concomitant]
  22. TOPIRAMATE [Concomitant]

REACTIONS (9)
  - TREMOR [None]
  - MOVEMENT DISORDER [None]
  - TARDIVE DYSKINESIA [None]
  - EXTRAPYRAMIDAL DISORDER [None]
  - EMOTIONAL DISORDER [None]
  - AKATHISIA [None]
  - RESTLESS LEGS SYNDROME [None]
  - DYSTONIA [None]
  - ECONOMIC PROBLEM [None]
